FAERS Safety Report 20371322 (Version 1)
Quarter: 2022Q1

REPORT INFORMATION
  Report Type: Spontaneous
  Country: NO (occurrence: NO)
  Receive Date: 20220124
  Receipt Date: 20220124
  Transmission Date: 20220423
  Serious: Yes (Other)
  Sender: FDA-Public Use
  Company Number: NO-PFIZER INC-202200078401

PATIENT
  Age: 81 Year
  Sex: Male

DRUGS (6)
  1. NEURONTIN [Suspect]
     Active Substance: GABAPENTIN
     Indication: Prolapse
     Dosage: UNK
     Dates: start: 20201029, end: 20201106
  2. ELIQUIS [Concomitant]
     Active Substance: APIXABAN
  3. MONTELUKAST [Concomitant]
     Active Substance: MONTELUKAST SODIUM
  4. LIPITOR [Concomitant]
     Active Substance: ATORVASTATIN CALCIUM
  5. PROSCAR [Concomitant]
     Active Substance: FINASTERIDE
  6. CETIRIZINE HYDROCHLORIDE [Concomitant]
     Active Substance: CETIRIZINE HYDROCHLORIDE

REACTIONS (7)
  - Dizziness [Unknown]
  - Fall [Recovered/Resolved with Sequelae]
  - Tooth loss [Recovered/Resolved with Sequelae]
  - Lip injury [Recovered/Resolved with Sequelae]
  - Scar pain [Not Recovered/Not Resolved]
  - Scar discomfort [Not Recovered/Not Resolved]
  - Off label use [Unknown]

NARRATIVE: CASE EVENT DATE: 20201029
